FAERS Safety Report 5852106-8 (Version None)
Quarter: 2008Q3

REPORT INFORMATION
  Report Type: 
  Country: None (occurrence: None)
  Receive Date: 20080821
  Receipt Date: 20080813
  Transmission Date: 20090109
  Serious: Yes (Hospitalization, Other)
  Sender: FDA-Public Use
  Company Number: CA-JNJFOC-20080800954

PATIENT
  Sex: Female

DRUGS (5)
  1. DURAGESIC-100 [Suspect]
     Route: 062
  2. DURAGESIC-100 [Suspect]
     Indication: ISCHAEMIC LIMB PAIN
     Route: 062
  3. DILAUDID [Suspect]
     Indication: PROCEDURAL PAIN
  4. OXYCONTIN [Concomitant]
  5. LYRICA [Concomitant]
     Indication: PAIN

REACTIONS (5)
  - DRUG PRESCRIBING ERROR [None]
  - GANGRENE [None]
  - HALLUCINATION [None]
  - SEDATION [None]
  - WRONG TECHNIQUE IN DRUG USAGE PROCESS [None]
